FAERS Safety Report 9016846 (Version 1)
Quarter: 2013Q1

REPORT INFORMATION
  Report Type: Spontaneous
  Country: JP (occurrence: JP)
  Receive Date: 20130117
  Receipt Date: 20130117
  Transmission Date: 20140127
  Serious: Yes (Hospitalization)
  Sender: FDA-Public Use
  Company Number: JP-ELI_LILLY_AND_COMPANY-JP201201004925

PATIENT
  Age: 82 Year
  Sex: Female

DRUGS (3)
  1. FORTEO [Suspect]
     Dosage: UNK
     Route: 058
     Dates: start: 201111, end: 20120223
  2. FORTEO [Suspect]
     Dosage: UNK
     Dates: start: 20120805
  3. LIMAPROST ALFADEX [Concomitant]

REACTIONS (6)
  - Aneurysm [Unknown]
  - Pyrexia [Unknown]
  - Parosmia [Not Recovered/Not Resolved]
  - Ageusia [Recovering/Resolving]
  - Weight increased [Unknown]
  - Headache [Not Recovered/Not Resolved]
